FAERS Safety Report 11376399 (Version 6)
Quarter: 2015Q4

REPORT INFORMATION
  Report Type: Report from Study
  Country: CA (occurrence: CA)
  Receive Date: 20150813
  Receipt Date: 20151111
  Transmission Date: 20160304
  Serious: Yes (Other)
  Sender: FDA-Public Use
  Company Number: CA-BRISTOL-MYERS SQUIBB COMPANY-BMS-2015-028168

PATIENT
  Age: 53 Year
  Sex: Female

DRUGS (5)
  1. TAMOXIFEN [Concomitant]
     Active Substance: TAMOXIFEN
     Indication: PRODUCT USED FOR UNKNOWN INDICATION
     Dosage: UNK
     Route: 065
  2. ABATACEPT [Suspect]
     Active Substance: ABATACEPT
     Indication: RHEUMATOID ARTHRITIS
     Dosage: 125 MG, QWK
     Route: 058
     Dates: start: 20150416
  3. PREDNISONE. [Concomitant]
     Active Substance: PREDNISONE
     Indication: PRODUCT USED FOR UNKNOWN INDICATION
     Dosage: UNK
     Route: 065
  4. VITAMIN B12 [Concomitant]
     Active Substance: CYANOCOBALAMIN
     Indication: PRODUCT USED FOR UNKNOWN INDICATION
     Dosage: UNK
     Route: 065
  5. CARBACOL [Concomitant]
     Indication: PRODUCT USED FOR UNKNOWN INDICATION
     Dosage: UNK
     Route: 065

REACTIONS (33)
  - Haematochezia [Unknown]
  - Nausea [Unknown]
  - Dyspnoea [Unknown]
  - Injection site swelling [Recovered/Resolved]
  - Bladder discomfort [Unknown]
  - Fatigue [Unknown]
  - Ecchymosis [Unknown]
  - Mouth ulceration [Recovering/Resolving]
  - Suicidal ideation [Unknown]
  - Asthenia [Unknown]
  - Palpitations [Unknown]
  - Vomiting [Unknown]
  - Nasopharyngitis [Unknown]
  - Pyrexia [Recovered/Resolved]
  - Liver disorder [Unknown]
  - Dysuria [Recovered/Resolved]
  - Eating disorder [Unknown]
  - Rheumatoid arthritis [Unknown]
  - Hot flush [Unknown]
  - Blood urine present [Recovered/Resolved]
  - Vulvovaginal discomfort [Unknown]
  - Dry eye [Unknown]
  - Tachyphrenia [Unknown]
  - Drug ineffective [Unknown]
  - Productive cough [Unknown]
  - Disturbance in attention [Unknown]
  - Chills [Unknown]
  - Pain [Unknown]
  - Cough [Unknown]
  - Abdominal distension [Unknown]
  - Dry throat [Unknown]
  - Injection site erythema [Recovered/Resolved]
  - Contusion [Unknown]

NARRATIVE: CASE EVENT DATE: 201505
